FAERS Safety Report 16202153 (Version 3)
Quarter: 2020Q1

REPORT INFORMATION
  Report Type: Report from Study
  Country: US (occurrence: US)
  Receive Date: 20190416
  Receipt Date: 20200122
  Transmission Date: 20200409
  Serious: Yes (Hospitalization)
  Sender: FDA-Public Use
  Company Number: US-ROCHE-2302793

PATIENT
  Age: 39 Year
  Sex: Male

DRUGS (1)
  1. OCREVUS [Suspect]
     Active Substance: OCRELIZUMAB
     Indication: PRIMARY PROGRESSIVE MULTIPLE SCLEROSIS
     Dosage: HE RECEIVED THE MOST RECENT INFUSION OF OCRELIZUMAB ON 12/OCT/2019.
     Route: 065
     Dates: start: 20190323

REACTIONS (3)
  - Thrombosis [Recovered/Resolved]
  - Infection [Not Recovered/Not Resolved]
  - Cellulitis [Recovered/Resolved]

NARRATIVE: CASE EVENT DATE: 20190405
